FAERS Safety Report 9514971 (Version 1)
Quarter: 2013Q1

REPORT INFORMATION
  Report Type: Spontaneous
  Country: US (occurrence: None)
  Receive Date: 20130305
  Receipt Date: 20130305
  Transmission Date: 20140127
  Serious: Yes (Hospitalization)
  Sender: FDA-Public Use
  Company Number: 163-21880-12112727

PATIENT
  Age: 61 Year
  Sex: Male

DRUGS (8)
  1. REVLIMID (LENALIDOMIDE) [Suspect]
     Indication: PLASMA CELL MYELOMA
     Route: 048
     Dates: start: 201101
  2. CALCIUM (CALCIUM) [Suspect]
  3. FIBERCON [Suspect]
  4. MAGNESIUM OXIDE (MAGNESIUM OXIDE) [Suspect]
  5. METAMUCIL [Suspect]
  6. ROBAXIN [Suspect]
  7. SIMVASTATIN (SIMVASTATIN) [Suspect]
  8. ZOMETA (ZOLEDRONIC ACID) [Concomitant]

REACTIONS (1)
  - Depression [None]
